FAERS Safety Report 7591734-9 (Version None)
Quarter: 2011Q3

REPORT INFORMATION
  Report Type: 
  Country: None (occurrence: None)
  Receive Date: 20110701
  Receipt Date: 20110701
  Transmission Date: 20111222
  Serious: No
  Sender: FDA-Public Use
  Company Number: None

PATIENT
  Sex: Female

DRUGS (1)
  1. SIMVASTATIN [Suspect]
     Dosage: 40MG ONCE A DAY PO
     Route: 048

REACTIONS (3)
  - MUSCULAR WEAKNESS [None]
  - FATIGUE [None]
  - PRODUCT SUBSTITUTION ISSUE [None]
